FAERS Safety Report 9817102 (Version 2)
Quarter: 2014Q1

REPORT INFORMATION
  Report Type: Report from Study
  Country: BD (occurrence: BD)
  Receive Date: 20140114
  Receipt Date: 20140120
  Transmission Date: 20141002
  Serious: Yes (Death, Other)
  Sender: FDA-Public Use
  Company Number: PHHY2014BD003027

PATIENT
  Age: 95 Year
  Sex: Male

DRUGS (5)
  1. EXELON PATCH [Suspect]
     Indication: DEMENTIA
     Dosage: 9.5 MG, DAILY
     Route: 062
     Dates: start: 201306
  2. LOSARTAN [Concomitant]
     Dosage: UNK
  3. UROMAX [Concomitant]
     Dosage: UNK
  4. BONVIVA [Concomitant]
     Dosage: UNK
  5. VITAMINS NOS [Concomitant]
     Dosage: UNK

REACTIONS (4)
  - Death [Fatal]
  - Choking [Unknown]
  - Decubitus ulcer [Unknown]
  - Pain [Unknown]
